FAERS Safety Report 8788876 (Version 2)
Quarter: 2012Q4

REPORT INFORMATION
  Report Type: 
  Country: JP (occurrence: JP)
  Receive Date: 20120916
  Receipt Date: 20121212
  Transmission Date: 20130627
  Serious: Yes (Other)
  Sender: FDA-Public Use
  Company Number: JP-009507513-1209JPN003874

PATIENT
  Age: 65 Year
  Sex: Female
  Weight: 50 kg

DRUGS (11)
  1. PEGINTRON [Suspect]
     Indication: CHRONIC HEPATITIS C
     Dosage: 1.5 Microgram per kilogram, qw
     Route: 058
     Dates: start: 20120515, end: 20121023
  2. REBETOL [Suspect]
     Indication: CHRONIC HEPATITIS C
     Dosage: 600 mg, qd
     Route: 048
     Dates: start: 20120515, end: 20120604
  3. REBETOL [Suspect]
     Dosage: 200 mg, qd
     Route: 048
     Dates: start: 20120605, end: 20120710
  4. REBETOL [Suspect]
     Dosage: 200 mg/ 2 days
     Route: 048
     Dates: start: 20120710
  5. REBETOL [Suspect]
     Dosage: 200 mg, qd
     Route: 048
     Dates: start: 20120807, end: 20120820
  6. REBETOL [Suspect]
     Dosage: 200 mg/3 days
     Route: 048
     Dates: start: 20120821, end: 20121015
  7. REBETOL [Suspect]
     Dosage: 400 mg, qd
     Route: 048
     Dates: start: 20121016, end: 20121030
  8. TELAVIC [Suspect]
     Indication: CHRONIC HEPATITIS C
     Dosage: 2250 mg, qd
     Route: 048
     Dates: start: 20120515, end: 20120723
  9. TELAVIC [Suspect]
     Dosage: 1.5 g, qd
     Route: 048
     Dates: start: 20120724, end: 20120807
  10. LENDORMIN [Concomitant]
     Dosage: formulation: POR
     Route: 048
  11. FERROMIA [Concomitant]
     Dosage: formulation: POR
     Route: 048

REACTIONS (2)
  - Anaemia [Not Recovered/Not Resolved]
  - Malaise [Not Recovered/Not Resolved]
